FAERS Safety Report 5249618-7 (Version None)
Quarter: 2007Q1

REPORT INFORMATION
  Report Type: 
  Country: None (occurrence: None)
  Receive Date: 20070228
  Receipt Date: 20060502
  Transmission Date: 20070707
  Serious: Yes (Hospitalization)
  Sender: FDA-Public Use
  Company Number: US-GLAXOSMITHKLINE-A0604087A

PATIENT
  Age: 60 Year
  Sex: Female

DRUGS (5)
  1. IMITREX [Suspect]
     Indication: MIGRAINE
     Dosage: 6MG AS REQUIRED
     Route: 058
  2. NEXIUM [Concomitant]
  3. INDERAL [Concomitant]
  4. GABAPENTIN [Concomitant]
  5. POTASSIUM ACETATE [Concomitant]

REACTIONS (3)
  - BLOOD PRESSURE INCREASED [None]
  - COMMUNICATION DISORDER [None]
  - TRANSIENT ISCHAEMIC ATTACK [None]
